FAERS Safety Report 15533028 (Version 1)
Quarter: 2018Q4

REPORT INFORMATION
  Report Type: Spontaneous
  Country: FR (occurrence: FR)
  Receive Date: 20181019
  Receipt Date: 20181019
  Transmission Date: 20190205
  Serious: Yes (Hospitalization)
  Sender: FDA-Public Use
  Company Number: FR-JNJFOC-20181017058

PATIENT
  Age: 42 Year
  Sex: Male
  Weight: 106 kg

DRUGS (8)
  1. THERALENE [Suspect]
     Active Substance: TRIMEPRAZINE
     Indication: SUICIDE ATTEMPT
     Route: 048
  2. PARACETAMOL [Suspect]
     Active Substance: ACETAMINOPHEN
     Indication: SUICIDE ATTEMPT
     Route: 048
  3. PREGABALINE [Suspect]
     Active Substance: PREGABALIN
     Indication: SUICIDE ATTEMPT
     Route: 048
  4. TOPALGIC (TRAMADOL HYDROCHLORIDE) [Suspect]
     Active Substance: TRAMADOL HYDROCHLORIDE
     Indication: SUICIDE ATTEMPT
     Route: 048
  5. IXPRIM [Suspect]
     Active Substance: ACETAMINOPHEN\TRAMADOL HYDROCHLORIDE
     Indication: SUICIDE ATTEMPT
     Route: 048
  6. VALIUM [Suspect]
     Active Substance: DIAZEPAM
     Indication: SUICIDE ATTEMPT
     Route: 048
  7. SERESTA [Suspect]
     Active Substance: OXAZEPAM
     Indication: SUICIDE ATTEMPT
     Route: 048
  8. PYOSTACINE [Suspect]
     Active Substance: PRISTINAMYCIN
     Indication: SUICIDE ATTEMPT
     Route: 048

REACTIONS (4)
  - Acute kidney injury [Recovered/Resolved]
  - Toxicity to various agents [Recovered/Resolved]
  - Rhabdomyolysis [Recovered/Resolved]
  - Poisoning deliberate [Recovered/Resolved]

NARRATIVE: CASE EVENT DATE: 20180811
